FAERS Safety Report 10993794 (Version 1)
Quarter: 2015Q2

REPORT INFORMATION
  Report Type: Report from Study
  Country: FR (occurrence: FR)
  Receive Date: 20150407
  Receipt Date: 20150407
  Transmission Date: 20150821
  Serious: Yes (Hospitalization)
  Sender: FDA-Public Use
  Company Number: FR-SA-2014SA166234

PATIENT
  Age: 73 Year
  Sex: Male
  Weight: 84 kg

DRUGS (1)
  1. CABAZITAXEL [Suspect]
     Active Substance: CABAZITAXEL
     Route: 065

REACTIONS (27)
  - Erythema [Unknown]
  - Abdominal pain [Not Recovered/Not Resolved]
  - Pain in extremity [Unknown]
  - Flatulence [Unknown]
  - Dry eye [Unknown]
  - Back pain [Unknown]
  - Bronchitis [Unknown]
  - Stomatitis [Unknown]
  - Alopecia [Recovered/Resolved]
  - Pubic pain [Unknown]
  - Urinary tract infection [Not Recovered/Not Resolved]
  - Lacrimation increased [Recovered/Resolved]
  - Onycholysis [Unknown]
  - Pain [Unknown]
  - Anuria [Unknown]
  - Epistaxis [Not Recovered/Not Resolved]
  - Constipation [Recovered/Resolved]
  - Decreased appetite [Recovering/Resolving]
  - Peripheral sensory neuropathy [Not Recovered/Not Resolved]
  - Haematuria [Unknown]
  - Arthralgia [Unknown]
  - Fatigue [Not Recovered/Not Resolved]
  - Weight decreased [Unknown]
  - Pyrexia [Unknown]
  - Dyspnoea [Not Recovered/Not Resolved]
  - Vomiting [Unknown]
  - Musculoskeletal chest pain [Unknown]

NARRATIVE: CASE EVENT DATE: 20140701
